FAERS Safety Report 5417874-8 (Version None)
Quarter: 2007Q3

REPORT INFORMATION
  Report Type: 
  Country: None (occurrence: None)
  Receive Date: 20070815
  Receipt Date: 20070802
  Transmission Date: 20080115
  Serious: Yes (Hospitalization)
  Sender: FDA-Public Use
  Company Number: 2007BI013497

PATIENT
  Age: 46 Year
  Sex: Male

DRUGS (1)
  1. NATALIZUMAB [Suspect]
     Indication: MULTIPLE SCLEROSIS
     Dosage: 300 MG;QM;IV
     Route: 042
     Dates: start: 20070427

REACTIONS (6)
  - ASPIRATION [None]
  - DYSPHAGIA [None]
  - GASTROINTESTINAL INFECTION [None]
  - INCOHERENT [None]
  - PNEUMONIA [None]
  - URINARY TRACT INFECTION [None]
